FAERS Safety Report 20230613 (Version 1)
Quarter: 2021Q4

REPORT INFORMATION
  Report Type: Spontaneous
  Country: US (occurrence: None)
  Receive Date: 20211227
  Receipt Date: 20211227
  Transmission Date: 20220303
  Serious: No
  Sender: FDA-Public Use
  Company Number: 2021A867438

PATIENT
  Age: 24362 Day
  Sex: Female
  Weight: 73 kg

DRUGS (4)
  1. BYDUREON BCISE [Suspect]
     Active Substance: EXENATIDE
     Indication: Type 2 diabetes mellitus
     Route: 058
     Dates: start: 20211203
  2. BYDUREON BCISE [Suspect]
     Active Substance: EXENATIDE
     Indication: Weight decreased
     Route: 058
     Dates: start: 20211203
  3. BYDUREON BCISE [Concomitant]
     Active Substance: EXENATIDE
     Indication: Type 2 diabetes mellitus
     Route: 058
     Dates: start: 20211203
  4. BYDUREON BCISE [Concomitant]
     Active Substance: EXENATIDE
     Indication: Weight decreased
     Route: 058
     Dates: start: 20211203

REACTIONS (4)
  - Injection site pain [Unknown]
  - Injection site haemorrhage [Recovered/Resolved]
  - Off label use [Unknown]
  - Incorrect dose administered by device [Unknown]

NARRATIVE: CASE EVENT DATE: 20211203
